FAERS Safety Report 17616160 (Version 3)
Quarter: 2020Q2

REPORT INFORMATION
  Report Type: Spontaneous
  Country: US (occurrence: US)
  Receive Date: 20200402
  Receipt Date: 20200409
  Transmission Date: 20200713
  Serious: Yes (Death)
  Sender: FDA-Public Use
  Company Number: US-PFIZER INC-2020133639

PATIENT
  Age: 43 Year
  Sex: Male

DRUGS (5)
  1. GABAPENTIN. [Suspect]
     Active Substance: GABAPENTIN
     Indication: ALCOHOL WITHDRAWAL SYNDROME
     Dosage: 300 MG, 3X/DAY
     Route: 048
  2. CLONIDINE. [Suspect]
     Active Substance: CLONIDINE
     Dosage: 0.1 MG/24H, UNK
  3. GABAPENTIN. [Suspect]
     Active Substance: GABAPENTIN
     Dosage: 300 MG, 2X/DAY
     Route: 048
  4. GABAPENTIN. [Suspect]
     Active Substance: GABAPENTIN
     Dosage: 600 MG, 1X/DAY (TWO CAPSULES BY MOUTH DAILY AT BEDTIME)
     Route: 048
  5. PREDNISONE. [Suspect]
     Active Substance: PREDNISONE
     Dosage: 60 MG, UNK (3 TABLETS ORALLY EVERY MORNING FOR 28 DAYS)
     Route: 048

REACTIONS (6)
  - Product use in unapproved indication [Unknown]
  - Social avoidant behaviour [Unknown]
  - Confusional state [Unknown]
  - Completed suicide [Fatal]
  - Depression [Unknown]
  - Off label use [Unknown]
